FAERS Safety Report 6636491-5 (Version None)
Quarter: 2010Q1

REPORT INFORMATION
  Report Type: 
  Country: None (occurrence: None)
  Receive Date: 20100316
  Receipt Date: 20100312
  Transmission Date: 20100710
  Serious: Yes (Hospitalization)
  Sender: FDA-Public Use
  Company Number: US-ELI_LILLY_AND_COMPANY-US201001005918

PATIENT
  Sex: Female
  Weight: 64.853 kg

DRUGS (14)
  1. DULOXETINE HYDROCHLORIDE [Suspect]
     Indication: NEURALGIA
     Dosage: 60 MG, DAILY (1/D)
     Route: 048
     Dates: start: 20100115, end: 20100125
  2. DULOXETINE HYDROCHLORIDE [Suspect]
     Dosage: 60 MG, DAILY (1/D)
     Route: 048
     Dates: start: 20100202
  3. CALCIUM [Concomitant]
     Indication: MEDICAL DIET
     Dosage: 1000 MG, DAILY (1/D)
     Dates: start: 20090401
  4. ALENDRONATE SODIUM [Concomitant]
     Indication: OSTEOPENIA
     Dosage: 35 MG, DAILY (1/D)
     Dates: start: 20090401
  5. TOPIRAMATE [Concomitant]
     Indication: MIGRAINE
     Dosage: 25 MG, 4/D
     Dates: start: 20091001
  6. DICYCLOMINE [Concomitant]
     Indication: IRRITABLE BOWEL SYNDROME
     Dosage: 10 MG, 3/D
     Dates: start: 20091201
  7. VENLAFAXINE HYDROCHLORIDE [Concomitant]
     Indication: DEPRESSION
     Dosage: 75 MG, 2/D
     Dates: start: 20090618
  8. METOCLOPRAMIDE [Concomitant]
     Indication: IRRITABLE BOWEL SYNDROME
     Dosage: 10 MG, OTHER
     Dates: start: 20070101
  9. IBUPROX [Concomitant]
     Indication: PAIN
     Dosage: 800 MG, WEEKLY (1/W)
     Dates: start: 20040101
  10. CONJUGATED ESTROGENS [Concomitant]
     Indication: HORMONE REPLACEMENT THERAPY
     Dosage: 1.25 MG, DAILY (1/D)
     Dates: start: 19990101
  11. GABAPENTIN [Concomitant]
     Indication: PAIN
     Dosage: 900 MG, DAILY (1/D)
     Dates: start: 20000101
  12. TIZANIDINE HCL [Concomitant]
     Indication: PAIN
     Dosage: 4 MG, 3/D
     Dates: start: 20040101
  13. OMEPRAZOLE [Concomitant]
     Indication: GASTROOESOPHAGEAL REFLUX DISEASE
     Dosage: UNK, DAILY (1/D)
     Dates: start: 20090201
  14. INTERFERON BETA-1A [Concomitant]
     Indication: MULTIPLE SCLEROSIS
     Dosage: 30 UG, WEEKLY (1/W)
     Dates: start: 20040101

REACTIONS (1)
  - WOUND INFECTION [None]
